FAERS Safety Report 5015027-9 (Version None)
Quarter: 2006Q2

REPORT INFORMATION
  Report Type: 
  Country: None (occurrence: None)
  Receive Date: 20060425
  Receipt Date: 20060103
  Transmission Date: 20061013
  Serious: Yes (Hospitalization)
  Sender: FDA-Public Use
  Company Number: WAES 0601USA00200

PATIENT
  Age: 4 Year
  Sex: Female

DRUGS (3)
  1. SINGULAIR [Suspect]
     Indication: HYPERSENSITIVITY
     Dosage: 4 MG/DAILY/PO
     Route: 048
     Dates: start: 20040601, end: 20051214
  2. PEPCID [Suspect]
     Indication: STOMACH DISCOMFORT
     Dosage: PO
     Route: 048
     Dates: start: 20051214
  3. ZYRTEC [Concomitant]

REACTIONS (2)
  - CONVULSION [None]
  - STOMACH DISCOMFORT [None]
